FAERS Safety Report 25602943 (Version 1)
Quarter: 2025Q3

REPORT INFORMATION
  Report Type: Spontaneous
  Country: EU (occurrence: EU)
  Receive Date: 20250724
  Receipt Date: 20250724
  Transmission Date: 20251021
  Serious: Yes (Hospitalization, Other)
  Sender: MYLAN
  Company Number: None

PATIENT
  Age: 71 Year
  Sex: Male

DRUGS (32)
  1. AMLODIPINE [Suspect]
     Active Substance: AMLODIPINE BESYLATE
     Indication: Product used for unknown indication
     Dates: start: 20250306, end: 20250306
  2. TRIAZOLAM [Suspect]
     Active Substance: TRIAZOLAM
     Indication: Product used for unknown indication
     Dates: start: 20250306, end: 20250306
  3. NALOXONE HYDROCHLORIDE\OXYCODONE HYDROCHLORIDE [Suspect]
     Active Substance: NALOXONE HYDROCHLORIDE\OXYCODONE HYDROCHLORIDE
     Indication: Product used for unknown indication
     Dates: start: 20250306, end: 20250306
  4. DELORAZEPAM [Suspect]
     Active Substance: DELORAZEPAM
     Indication: Product used for unknown indication
     Dates: start: 20250306, end: 20250306
  5. LORMETAZEPAM [Suspect]
     Active Substance: LORMETAZEPAM
     Indication: Product used for unknown indication
     Dates: start: 20250306, end: 20250306
  6. PRAMIPEXOLE [Suspect]
     Active Substance: PRAMIPEXOLE
     Indication: Product used for unknown indication
     Dates: start: 20250306, end: 20250306
  7. COUMADIN [Concomitant]
     Active Substance: WARFARIN SODIUM
  8. MONOKET [Concomitant]
     Active Substance: ISOSORBIDE MONONITRATE
  9. RANEXA [Concomitant]
     Active Substance: RANOLAZINE
  10. SILODOSIN [Concomitant]
     Active Substance: SILODOSIN
  11. CYANOCOBALAMIN\FOLIC ACID\PYRIDOXINE HYDROCHLORIDE [Concomitant]
     Active Substance: CYANOCOBALAMIN\FOLIC ACID\PYRIDOXINE HYDROCHLORIDE
  12. DULOXETINE [Concomitant]
     Active Substance: DULOXETINE
  13. Decuster [Concomitant]
  14. LASIX [Concomitant]
     Active Substance: FUROSEMIDE
  15. Luvion [Concomitant]
  16. NEBIVOLOL [Concomitant]
     Active Substance: NEBIVOLOL
  17. PREGABALIN [Concomitant]
     Active Substance: PREGABALIN
  18. MESALAMINE [Concomitant]
     Active Substance: MESALAMINE
  19. EMPAGLIFLOZIN [Concomitant]
     Active Substance: EMPAGLIFLOZIN
  20. ASPIRIN [Concomitant]
     Active Substance: ASPIRIN
  21. EZETIMIBE [Concomitant]
     Active Substance: EZETIMIBE
  22. ALLOPURINOL [Concomitant]
     Active Substance: ALLOPURINOL
  23. RABEPRAZOLE SODIUM [Concomitant]
     Active Substance: RABEPRAZOLE SODIUM
  24. QUETIAPINE [Concomitant]
     Active Substance: QUETIAPINE
  25. MIRTAZAPINE [Concomitant]
     Active Substance: MIRTAZAPINE
  26. SUCRALFATE [Concomitant]
     Active Substance: SUCRALFATE
  27. METFORMIN HYDROCHLORIDE [Concomitant]
     Active Substance: METFORMIN HYDROCHLORIDE
  28. ACETAMINOPHEN\OXYCODONE HYDROCHLORIDE [Concomitant]
     Active Substance: ACETAMINOPHEN\OXYCODONE HYDROCHLORIDE
  29. SIMPONI [Concomitant]
     Active Substance: GOLIMUMAB
  30. CHOLECALCIFEROL [Concomitant]
     Active Substance: CHOLECALCIFEROL
  31. ISOSORBIDE DINITRATE [Concomitant]
     Active Substance: ISOSORBIDE DINITRATE
  32. Ossigeno [Concomitant]

REACTIONS (2)
  - Sopor [Recovered/Resolved]
  - Drug abuse [Recovered/Resolved]

NARRATIVE: CASE EVENT DATE: 20250306
